FAERS Safety Report 5968324-4 (Version None)
Quarter: 2008Q4

REPORT INFORMATION
  Report Type: 
  Country: None (occurrence: None)
  Receive Date: 20081126
  Receipt Date: 20081120
  Transmission Date: 20090506
  Serious: Yes (Hospitalization)
  Sender: FDA-Public Use
  Company Number: JP-JNJFOC-20081105593

PATIENT
  Age: 75 Year
  Sex: Male

DRUGS (4)
  1. DUROTEP MATRIX PATCH [Suspect]
     Indication: DRUG USE FOR UNKNOWN INDICATION
     Route: 062
  2. NSAID [Concomitant]
     Route: 065
  3. RESLIN [Concomitant]
     Route: 048
  4. SEROQUEL [Concomitant]
     Route: 065

REACTIONS (3)
  - BLOOD CALCIUM INCREASED [None]
  - DELIRIUM [None]
  - HYPOXIC ENCEPHALOPATHY [None]
